FAERS Safety Report 7460099-5 (Version None)
Quarter: 2011Q2

REPORT INFORMATION
  Report Type: 
  Country: None (occurrence: None)
  Receive Date: 20110505
  Receipt Date: 20110502
  Transmission Date: 20111010
  Serious: Yes (Hospitalization)
  Sender: FDA-Public Use
  Company Number: FR-PFIZER INC-2011093749

PATIENT
  Age: 50 Year
  Sex: Male

DRUGS (1)
  1. TAHOR [Suspect]
     Dosage: 40 MG
     Route: 048
     Dates: start: 20101230, end: 20110111

REACTIONS (1)
  - PANCREATITIS [None]
